FAERS Safety Report 19948474 (Version 2)
Quarter: 2022Q2

REPORT INFORMATION
  Report Type: Report from Study
  Country: GB (occurrence: None)
  Receive Date: 20211013
  Receipt Date: 20220620
  Transmission Date: 20220721
  Serious: Yes (Hospitalization)
  Sender: FDA-Public Use
  Company Number: GB-ROCHE-2914797

PATIENT
  Age: 78 Year
  Sex: Male

DRUGS (23)
  1. OBINUTUZUMAB [Suspect]
     Active Substance: OBINUTUZUMAB
     Indication: Mantle cell lymphoma
     Dosage: CYCLE 1: 100MG AT D1 AND 900MG AT D2; 1000MG AT D8; D15 NOT ADMINISTERED TU TO AE;
     Route: 042
     Dates: start: 20190409, end: 20190416
  2. OBINUTUZUMAB [Suspect]
     Active Substance: OBINUTUZUMAB
     Dosage: 1 TIME(S) EVERY MONTH / FROM CYCLE 1BIS TO CYCLE 6, D1 OF EACH CYCLE
     Route: 042
     Dates: start: 20190507, end: 20191001
  3. OBINUTUZUMAB [Suspect]
     Active Substance: OBINUTUZUMAB
     Dosage: 1 TIME(S) EVERY CYCLICAL / FROM CYCLE 8, D1 EVERY 2 CYCLE
     Route: 042
     Dates: start: 20191126, end: 20200318
  4. OBINUTUZUMAB [Suspect]
     Active Substance: OBINUTUZUMAB
     Route: 042
     Dates: start: 20200707, end: 20201223
  5. IBRUTINIB [Suspect]
     Active Substance: IBRUTINIB
     Indication: Mantle cell lymphoma
     Dosage: FROM CYCLE 1 D1 TO D12,
     Route: 048
     Dates: start: 20190409, end: 20190420
  6. IBRUTINIB [Suspect]
     Active Substance: IBRUTINIB
     Dosage: CYCLE 1 D21+22: RE-INTRODUCTION AFTER AE, TITRATING DOSE
     Route: 048
     Dates: start: 20190429, end: 20190430
  7. IBRUTINIB [Suspect]
     Active Substance: IBRUTINIB
     Dosage: CYCLE 1 D23+24: RE-INTRODUCTION AFTER AE, TITRATING DOSE
     Route: 048
     Dates: start: 20190501, end: 20190502
  8. IBRUTINIB [Suspect]
     Active Substance: IBRUTINIB
     Dosage: CYCLE 1 D25+26: RE-INTRODUCTION AFTER AE, TITRATING DOSE
     Route: 048
     Dates: start: 20190503, end: 20190504
  9. IBRUTINIB [Suspect]
     Active Substance: IBRUTINIB
     Dosage: FROM CYCLE 1, DAY 27 TO CYCLE 4, DAY 28
     Route: 048
     Dates: start: 20190505, end: 20190826
  10. IBRUTINIB [Suspect]
     Active Substance: IBRUTINIB
     Dosage: FROM CYCLE 4, DAY 31
     Route: 048
     Dates: start: 20190829, end: 20210218
  11. IBRUTINIB [Suspect]
     Active Substance: IBRUTINIB
     Route: 048
     Dates: start: 202102, end: 20210917
  12. VENETOCLAX [Suspect]
     Active Substance: VENETOCLAX
     Indication: Mantle cell lymphoma
     Dosage: 20 MILLIGRAM / CYCLE 1BIS, D1 TO D7,
     Route: 048
     Dates: start: 20190507, end: 20190513
  13. VENETOCLAX [Suspect]
     Active Substance: VENETOCLAX
     Dosage: CYCLE 1BIS, D8 TO D14
     Route: 048
     Dates: start: 20190514, end: 20190520
  14. VENETOCLAX [Suspect]
     Active Substance: VENETOCLAX
     Dosage: CYCLE 1BIS, D15 TO D21
     Route: 048
     Dates: start: 20190521, end: 20190527
  15. VENETOCLAX [Suspect]
     Active Substance: VENETOCLAX
     Dosage: CYCLE 1BIS, D22 TO D28
     Route: 048
     Dates: start: 20190528, end: 20190603
  16. VENETOCLAX [Suspect]
     Active Substance: VENETOCLAX
     Dosage: FROM CYCLE 2, DAY 1 TO CYCLE 3, DAY 27
     Route: 048
     Dates: start: 20190604, end: 20190728
  17. VENETOCLAX [Suspect]
     Active Substance: VENETOCLAX
     Dosage: CYCLE 3, DAY 28: DOSE DIMINUTION DUE TO TABLET LODGED IN THROAT AND WAS THROWN AWAY
     Route: 048
     Dates: start: 20190729, end: 20190729
  18. VENETOCLAX [Suspect]
     Active Substance: VENETOCLAX
     Dosage: FROM CYCLE 3, DAY 29 TO CYCLE 4, DAY 28 // STOP DUE TO PATIENT ERROR (D29) THEN AE (FROM CYCLE 5, D1
     Route: 048
     Dates: start: 20190730, end: 20190825
  19. VENETOCLAX [Suspect]
     Active Substance: VENETOCLAX
     Dosage: FROM CYCLE 5, DAY 8 FROM CYCLE 6, DAY 25 // STOP DUE TO PATIENT^S ERROR
     Route: 048
     Dates: start: 20190910, end: 20191025
  20. VENETOCLAX [Suspect]
     Active Substance: VENETOCLAX
     Route: 048
     Dates: start: 20191027, end: 20191112
  21. VENETOCLAX [Suspect]
     Active Substance: VENETOCLAX
     Dosage: FROM CYCLE 7, D17 TO CYCLE 11, D7 // PATIENT HAD FORGOT HIS TREATMENT
     Route: 048
     Dates: start: 20191114, end: 20200224
  22. VENETOCLAX [Suspect]
     Active Substance: VENETOCLAX
     Dosage: FROM CYCLE 11, D9 TO CYCLE 23, D30
     Route: 048
     Dates: start: 20200226, end: 20210218
  23. IMBRUVICA [Concomitant]
     Active Substance: IBRUTINIB
     Dates: start: 20210219, end: 20210917

REACTIONS (1)
  - Vertigo [Recovered/Resolved]

NARRATIVE: CASE EVENT DATE: 20210916
